FAERS Safety Report 9663813 (Version 1)
Quarter: 2013Q4

REPORT INFORMATION
  Report Type: Spontaneous
  Country: EC (occurrence: EC)
  Receive Date: 20131101
  Receipt Date: 20131101
  Transmission Date: 20140711
  Serious: Yes (Hospitalization)
  Sender: FDA-Public Use
  Company Number: EC-JNJFOC-20131014953

PATIENT
  Age: 27 Year
  Sex: Male
  Weight: 69 kg

DRUGS (5)
  1. REMICADE [Suspect]
     Indication: ANKYLOSING SPONDYLITIS
     Route: 042
     Dates: start: 20131003
  2. PARACETAMOL [Concomitant]
     Indication: PREMEDICATION
     Route: 048
  3. CLEMASTINE [Concomitant]
     Indication: PREMEDICATION
     Route: 042
  4. METOCLOPRAMIDE [Concomitant]
     Indication: PREMEDICATION
     Route: 042
  5. HYDROCORTISONE [Concomitant]
     Indication: PREMEDICATION
     Route: 042

REACTIONS (1)
  - Acute generalised exanthematous pustulosis [Unknown]
